FAERS Safety Report 8453804-2 (Version None)
Quarter: 2012Q2

REPORT INFORMATION
  Report Type: 
  Country: None (occurrence: None)
  Receive Date: 20120620
  Receipt Date: 20120611
  Transmission Date: 20120825
  Serious: Yes (Hospitalization)
  Sender: FDA-Public Use
  Company Number: FR-ASTRAZENECA-2010SE36984

PATIENT
  Age: 76 Year
  Sex: Female

DRUGS (7)
  1. METFORMIN HCL [Suspect]
     Route: 048
  2. FENOFIBRATE [Suspect]
     Route: 048
  3. CARDEGIC [Suspect]
     Route: 048
  4. TENORMIN [Suspect]
     Route: 048
  5. AMARYL [Suspect]
     Route: 048
  6. NIDREL [Suspect]
     Route: 048
  7. ALLOPURINOL [Suspect]
     Route: 048

REACTIONS (1)
  - AUTOIMMUNE HEPATITIS [None]
